FAERS Safety Report 18026599 (Version 1)
Quarter: 2020Q3

REPORT INFORMATION
  Report Type: Spontaneous
  Country: CN (occurrence: CN)
  Receive Date: 20200716
  Receipt Date: 20200716
  Transmission Date: 20201103
  Serious: Yes (Other)
  Sender: FDA-Public Use
  Company Number: CN-ROCHE-2639922

PATIENT
  Age: 74 Year
  Sex: Male

DRUGS (3)
  1. HERCEPTIN [Suspect]
     Active Substance: TRASTUZUMAB
     Indication: GASTRIC CANCER
     Dosage: 8MG/KG
     Route: 065
     Dates: start: 20191021
  2. HERCEPTIN [Suspect]
     Active Substance: TRASTUZUMAB
     Route: 065
  3. HERCEPTIN [Suspect]
     Active Substance: TRASTUZUMAB
     Dosage: 8MG/KG
     Route: 065
     Dates: start: 20191119

REACTIONS (3)
  - Ventricular hypertrophy [Unknown]
  - Atrioventricular block first degree [Unknown]
  - Mitral valve incompetence [Unknown]
